FAERS Safety Report 10718077 (Version 2)
Quarter: 2015Q1

REPORT INFORMATION
  Report Type: Spontaneous
  Country: US (occurrence: US)
  Receive Date: 20150117
  Receipt Date: 20150120
  Transmission Date: 20150721
  Serious: Yes (Death, Other)
  Sender: FDA-Public Use
  Company Number: US-JNJFOC-20150108886

PATIENT
  Age: 57 Year
  Sex: Female

DRUGS (2)
  1. ACETAMINOPHEN. [Suspect]
     Active Substance: ACETAMINOPHEN
     Indication: PRODUCT USED FOR UNKNOWN INDICATION
     Route: 065
  2. ACETAMINOPHEN. [Suspect]
     Active Substance: ACETAMINOPHEN
     Route: 065

REACTIONS (9)
  - Hypoglycaemia [Unknown]
  - Depressed level of consciousness [Unknown]
  - Tachycardia [Unknown]
  - Pneumonia aspiration [Unknown]
  - Hypotension [Unknown]
  - Blister [Unknown]
  - Toxicity to various agents [Fatal]
  - Coma [Unknown]
  - Rash [Unknown]
